FAERS Safety Report 10480507 (Version 2)
Quarter: 2016Q3

REPORT INFORMATION
  Report Type: Report from Study
  Country: US (occurrence: US)
  Receive Date: 20140929
  Receipt Date: 20160815
  Transmission Date: 20161109
  Serious: Yes (Life-Threatening, Hospitalization, Other)
  Sender: FDA-Public Use
  Company Number: US-ROCHE-1422682

PATIENT
  Sex: Female
  Weight: 86.26 kg

DRUGS (33)
  1. VENLAFAXINE ER [Concomitant]
     Active Substance: VENLAFAXINE HYDROCHLORIDE
     Route: 065
  2. PROBENECID. [Concomitant]
     Active Substance: PROBENECID
     Route: 065
  3. LAMOTRIGINE. [Concomitant]
     Active Substance: LAMOTRIGINE
     Route: 065
  4. VERAPAMIL [Concomitant]
     Active Substance: VERAPAMIL HYDROCHLORIDE
     Route: 065
  5. NUTROPIN AQ [Suspect]
     Active Substance: SOMATROPIN
     Indication: HYPOPITUITARISM
     Route: 058
     Dates: start: 20110831
  6. BACTRIM [Suspect]
     Active Substance: SULFAMETHOXAZOLE\TRIMETHOPRIM
     Indication: LOCALISED INFECTION
     Route: 065
  7. NORDITROPIN [Concomitant]
     Active Substance: SOMATROPIN
     Route: 058
  8. WELLBUTRIN [Concomitant]
     Active Substance: BUPROPION HYDROCHLORIDE
     Route: 065
  9. PROTONIX [Concomitant]
     Active Substance: PANTOPRAZOLE SODIUM
     Route: 065
  10. SYNTHROID [Concomitant]
     Active Substance: LEVOTHYROXINE SODIUM
     Route: 065
  11. LOSARTAN/HCTZ [Concomitant]
     Active Substance: HYDROCHLOROTHIAZIDE\LOSARTAN
     Dosage: 50/12.25 MG
     Route: 065
  12. TOLMETIN SODIUM. [Concomitant]
     Active Substance: TOLMETIN SODIUM
     Route: 065
  13. CYTOMEL [Concomitant]
     Active Substance: LIOTHYRONINE SODIUM
     Route: 065
  14. PREMARIN [Concomitant]
     Active Substance: ESTROGENS, CONJUGATED
     Indication: MENOPAUSAL SYMPTOMS
     Route: 065
  15. PROTONIX [Concomitant]
     Active Substance: PANTOPRAZOLE SODIUM
     Indication: GASTROOESOPHAGEAL REFLUX DISEASE
     Route: 065
  16. PROBENECID. [Concomitant]
     Active Substance: PROBENECID
     Indication: GOUT
     Route: 065
  17. NUTROPIN AQ [Suspect]
     Active Substance: SOMATROPIN
     Indication: HYPOTHALAMO-PITUITARY DISORDER
     Route: 058
     Dates: start: 2008
  18. SYNTHROID [Concomitant]
     Active Substance: LEVOTHYROXINE SODIUM
     Dosage: 150 MCG QD
     Route: 065
  19. LOSARTAN/HCTZ [Concomitant]
     Active Substance: HYDROCHLOROTHIAZIDE\LOSARTAN
     Dosage: 100/25 MG IN AM
     Route: 065
  20. LOSARTAN. [Concomitant]
     Active Substance: LOSARTAN
     Route: 065
  21. HYDROCORTISONE. [Concomitant]
     Active Substance: HYDROCORTISONE
     Route: 065
  22. CELEBREX [Concomitant]
     Active Substance: CELECOXIB
     Route: 065
  23. IBUPROFEN. [Concomitant]
     Active Substance: IBUPROFEN
     Dosage: 1-2 TID
     Route: 065
  24. ROPINIROLE. [Concomitant]
     Active Substance: ROPINIROLE
     Route: 065
  25. CORTEF [Suspect]
     Active Substance: HYDROCORTISONE
     Indication: ADDISON^S DISEASE
     Route: 048
  26. NEURONTIN [Concomitant]
     Active Substance: GABAPENTIN
     Dosage: UPTO 5 TIMES A DAY
     Route: 065
  27. LORTAB (UNITED STATES) [Concomitant]
     Dosage: 10/500 MG PRN 2- 3 TABS DAILY
     Route: 065
  28. TOPROL XL [Concomitant]
     Active Substance: METOPROLOL SUCCINATE
     Indication: HYPERTENSION
     Route: 065
  29. ZOCOR [Concomitant]
     Active Substance: SIMVASTATIN
     Indication: HYPERLIPIDAEMIA
     Dosage: AT NIGHT
     Route: 065
  30. SOMA [Concomitant]
     Active Substance: CARISOPRODOL
     Dosage: AS NEEDED
     Route: 065
  31. LASIX [Concomitant]
     Active Substance: FUROSEMIDE
     Route: 065
  32. NUTROPIN AQ [Suspect]
     Active Substance: SOMATROPIN
     Route: 058
  33. CEPHALEXIN. [Concomitant]
     Active Substance: CEPHALEXIN
     Route: 065

REACTIONS (20)
  - Poor quality sleep [Unknown]
  - Trichorrhexis [Unknown]
  - Constipation [Unknown]
  - Localised infection [Unknown]
  - Bronchitis [Recovered/Resolved]
  - Weight decreased [Unknown]
  - Diarrhoea [Unknown]
  - Drug ineffective [Unknown]
  - Pneumonia [Recovered/Resolved]
  - Urinary tract infection [Recovered/Resolved]
  - Neuropathy peripheral [Unknown]
  - Asthenia [Unknown]
  - Sinusitis [Unknown]
  - Insomnia [Unknown]
  - Musculoskeletal pain [Unknown]
  - Foot deformity [Unknown]
  - Foot fracture [Unknown]
  - Alopecia [Unknown]
  - Memory impairment [Unknown]
  - Clostridium difficile colitis [Recovered/Resolved]
